FAERS Safety Report 19140969 (Version 1)
Quarter: 2021Q2

REPORT INFORMATION
  Report Type: Spontaneous
  Country: CN (occurrence: CN)
  Receive Date: 20210415
  Receipt Date: 20210415
  Transmission Date: 20210717
  Serious: Yes (Other)
  Sender: FDA-Public Use
  Company Number: CN-PFIZER INC-2021375035

PATIENT
  Age: 9 Year
  Sex: Male

DRUGS (3)
  1. CYTARABINE. [Suspect]
     Active Substance: CYTARABINE
     Indication: ACUTE MYELOID LEUKAEMIA
     Dosage: 100 MG/M2, CYCLIC (ONCE A DAY, 7 DAYS, D1?D7)
  2. DAUNORUBICIN HCL [Suspect]
     Active Substance: DAUNORUBICIN HYDROCHLORIDE
     Indication: ACUTE MYELOID LEUKAEMIA
     Dosage: 40 MG/M2, CYCLIC (EVERY OTHER DAY, D1, D3, D5)
  3. ETOPOSIDE. [Suspect]
     Active Substance: ETOPOSIDE
     Indication: ACUTE MYELOID LEUKAEMIA
     Dosage: 100 MG/M2, CYCLIC (ONCE A DAY, 5 DAYS, D1?D5)

REACTIONS (6)
  - Hypersensitivity [Unknown]
  - Drug eruption [Unknown]
  - Vomiting [Unknown]
  - Pyrexia [Unknown]
  - Myelosuppression [Unknown]
  - Nausea [Unknown]
